FAERS Safety Report 7358922-8 (Version None)
Quarter: 2011Q1

REPORT INFORMATION
  Report Type: 
  Country: None (occurrence: None)
  Receive Date: 20110317
  Receipt Date: 20110307
  Transmission Date: 20110831
  Serious: Yes (Death, Other)
  Sender: FDA-Public Use
  Company Number: ZA-BRISTOL-MYERS SQUIBB COMPANY-15597255

PATIENT
  Sex: Male

DRUGS (1)
  1. STOCRIN [Suspect]

REACTIONS (2)
  - DRUG ABUSE [None]
  - OVERDOSE [None]
